FAERS Safety Report 25352054 (Version 1)
Quarter: 2025Q2

REPORT INFORMATION
  Report Type: Spontaneous
  Country: KR (occurrence: KR)
  Receive Date: 20250523
  Receipt Date: 20250523
  Transmission Date: 20250716
  Serious: Yes (Other)
  Sender: AMNEAL
  Company Number: KR-AMNEAL PHARMACEUTICALS-2025-AMRX-01960

PATIENT

DRUGS (2)
  1. ALYMSYS [Suspect]
     Active Substance: BEVACIZUMAB-MALY
     Indication: Retinopathy of prematurity
  2. ALYMSYS [Suspect]
     Active Substance: BEVACIZUMAB-MALY

REACTIONS (2)
  - Glaucoma [Recovering/Resolving]
  - Off label use [Unknown]
